FAERS Safety Report 8431162-7 (Version None)
Quarter: 2012Q2

REPORT INFORMATION
  Report Type: 
  Country: None (occurrence: None)
  Receive Date: 20120612
  Receipt Date: 20120604
  Transmission Date: 20120825
  Serious: Yes (Other)
  Sender: FDA-Public Use
  Company Number: CHPA2012US011445

PATIENT
  Sex: Male

DRUGS (1)
  1. EXCEDRIN (MIGRAINE) [Suspect]
     Dosage: UNK, UNK
     Route: 048

REACTIONS (8)
  - GASTRIC DISORDER [None]
  - ABDOMINAL PAIN UPPER [None]
  - RASH [None]
  - FURUNCLE [None]
  - MALAISE [None]
  - ASTHENIA [None]
  - HEART RATE INCREASED [None]
  - BLOOD GLUCOSE INCREASED [None]
